FAERS Safety Report 13319890 (Version 1)
Quarter: 2017Q1

REPORT INFORMATION
  Report Type: Spontaneous
  Country: GB (occurrence: GB)
  Receive Date: 20170310
  Receipt Date: 20170310
  Transmission Date: 20170428
  Serious: Yes (Hospitalization)
  Sender: FDA-Public Use
  Company Number: GB-TEVA-745288ACC

PATIENT
  Age: 63 Year
  Sex: Male
  Weight: 87 kg

DRUGS (9)
  1. VARGATEF [Suspect]
     Active Substance: NINTEDANIB
     Route: 048
     Dates: start: 201611, end: 201701
  2. BISOPROLOL [Concomitant]
     Active Substance: BISOPROLOL
     Indication: HYPERTENSION
     Dosage: 2.5 MILLIGRAM DAILY;
     Route: 048
  3. LISINOPRIL. [Concomitant]
     Active Substance: LISINOPRIL
     Indication: HYPERTENSION
     Dosage: 2.5 MILLIGRAM DAILY;
     Route: 048
  4. VARGATEF [Suspect]
     Active Substance: NINTEDANIB
     Indication: LUNG CARCINOMA CELL TYPE UNSPECIFIED RECURRENT
     Dosage: 300 MILLIGRAM DAILY;
     Route: 065
  5. COCODAMOL [Concomitant]
     Active Substance: ACETAMINOPHEN\CODEINE PHOSPHATE
     Indication: PAIN
     Dosage: STRENGTH: 30/500
     Route: 048
  6. CYCLIZINE [Concomitant]
     Active Substance: CYCLIZINE
     Indication: NAUSEA
     Dosage: 50 MILLIGRAM DAILY;
     Route: 048
     Dates: start: 201612
  7. DOCETAXEL. [Suspect]
     Active Substance: DOCETAXEL
     Indication: LUNG CARCINOMA CELL TYPE UNSPECIFIED RECURRENT
     Dosage: DOCETAXEL WAS REDUCED AND KEPT TO 80%.
     Route: 065
  8. ASPIRIN. [Concomitant]
     Active Substance: ASPIRIN
     Indication: ATRIAL FIBRILLATION
     Dosage: 75 MILLIGRAM DAILY;
     Route: 048
  9. DOCETAXEL. [Suspect]
     Active Substance: DOCETAXEL
     Dosage: STRENGTH: 75MG/M2
     Route: 042
     Dates: end: 201701

REACTIONS (4)
  - Malaise [Recovered/Resolved]
  - Febrile neutropenia [Recovered/Resolved]
  - Neutropenic sepsis [Recovered/Resolved]
  - Febrile neutropenia [Recovered/Resolved]

NARRATIVE: CASE EVENT DATE: 20161122
